FAERS Safety Report 18448854 (Version 1)
Quarter: 2020Q4

REPORT INFORMATION
  Report Type: Report from Study
  Country: GB (occurrence: GB)
  Receive Date: 20201030
  Receipt Date: 20201030
  Transmission Date: 20210114
  Serious: Yes (Other)
  Sender: FDA-Public Use
  Company Number: NVSC2020GB208494

PATIENT
  Sex: Female

DRUGS (1)
  1. COSENTYX [Suspect]
     Active Substance: SECUKINUMAB
     Indication: PSORIASIS
     Dosage: 300 MG, UNKNOWN (LOADING DOSE)
     Route: 058
     Dates: start: 20200715

REACTIONS (5)
  - Hyperhidrosis [Unknown]
  - Blood glucose decreased [Unknown]
  - Tremor [Unknown]
  - Speech disorder [Unknown]
  - Syncope [Unknown]
